FAERS Safety Report 9159145 (Version 1)
Quarter: 2013Q1

REPORT INFORMATION
  Report Type: Spontaneous
  Country: US (occurrence: None)
  Receive Date: 20130311
  Receipt Date: 20130311
  Transmission Date: 20140127
  Serious: Yes (Death)
  Sender: FDA-Public Use
  Company Number: US-JNJFOC-20130303459

PATIENT
  Age: 62 Year
  Sex: Male

DRUGS (2)
  1. DECITABINE [Suspect]
  2. GEMTUZUMAB OZOGAMICIN [Suspect]
     Indication: MYELODYSPLASTIC SYNDROME

REACTIONS (1)
  - Acute myeloid leukaemia [None]
